FAERS Safety Report 18199405 (Version 6)
Quarter: 2024Q1

REPORT INFORMATION
  Report Type: Spontaneous
  Country: US (occurrence: US)
  Receive Date: 20200826
  Receipt Date: 20240125
  Transmission Date: 20240410
  Serious: Yes (Other)
  Sender: FDA-Public Use
  Company Number: US-PFIZER INC-2020329896

PATIENT
  Age: 58 Year
  Sex: Female
  Weight: 108 kg

DRUGS (12)
  1. DOCETAXEL [Suspect]
     Active Substance: DOCETAXEL\DOCETAXEL ANHYDROUS
     Indication: Invasive ductal breast carcinoma
     Dosage: 160 MG, CYCLIC (EVERY 3 WEEKS; C1-C5)
     Dates: start: 20171221, end: 201804
  2. DOCETAXEL [Suspect]
     Active Substance: DOCETAXEL\DOCETAXEL ANHYDROUS
     Dosage: 127 MG, SINGLE (C6)
     Dates: start: 20180423, end: 20180423
  3. TAXOTERE [Suspect]
     Active Substance: DOCETAXEL
     Indication: Invasive ductal breast carcinoma
     Dosage: 75 MG/M2 CYCLIC (06 CYCLES)
     Route: 042
     Dates: start: 20171221, end: 20180423
  4. PARAPLATIN [Concomitant]
     Active Substance: CARBOPLATIN
     Indication: Invasive ductal breast carcinoma
     Dosage: CYCLIC (750 MG, 600 MG, 756 MG)
     Dates: start: 20171221, end: 20180423
  5. NEULASTA [Concomitant]
     Active Substance: PEGFILGRASTIM
     Dosage: 6 MG, CYCLIC
     Dates: start: 20180302
  6. NEULASTA [Concomitant]
     Active Substance: PEGFILGRASTIM
     Dosage: 6 MG, CYCLIC
     Route: 058
     Dates: start: 20180323
  7. NEULASTA [Concomitant]
     Active Substance: PEGFILGRASTIM
     Dosage: 6 MG, CYCLIC
     Dates: start: 20180413
  8. HERCEPTIN [Concomitant]
     Active Substance: TRASTUZUMAB
     Indication: Invasive ductal breast carcinoma
     Dosage: 6 MG/KG, CYCLIC
     Route: 042
     Dates: start: 20180507, end: 20181210
  9. PERJETA [Concomitant]
     Active Substance: PERTUZUMAB
     Indication: Invasive ductal breast carcinoma
     Dosage: 420 MG, CYCLIC
     Route: 042
     Dates: start: 20180302
  10. PERJETA [Concomitant]
     Active Substance: PERTUZUMAB
     Dosage: 420 MG, CYCLIC
     Route: 042
     Dates: start: 20180323
  11. PERJETA [Concomitant]
     Active Substance: PERTUZUMAB
     Dosage: 420 MG, CYCLIC
     Dates: start: 20180413
  12. CARBOPLATIN [Concomitant]
     Active Substance: CARBOPLATIN
     Indication: Chemotherapy
     Dosage: UNK

REACTIONS (4)
  - Dacryocystitis [Not Recovered/Not Resolved]
  - Lacrimation increased [Not Recovered/Not Resolved]
  - Lacrimal structure injury [Unknown]
  - Dacryostenosis acquired [Not Recovered/Not Resolved]

NARRATIVE: CASE EVENT DATE: 20180201
